FAERS Safety Report 12237576 (Version 1)
Quarter: 2016Q2

REPORT INFORMATION
  Report Type: Spontaneous
  Country: CA (occurrence: None)
  Receive Date: 20160404
  Receipt Date: 20160404
  Transmission Date: 20160815
  Serious: Yes (Disabling, Other)
  Sender: FDA-Public Use
  Company Number: None

PATIENT
  Age: 26 Year
  Sex: Female
  Weight: 62.6 kg

DRUGS (4)
  1. MULTI VITAMINS [Concomitant]
  2. AVEENO POSITIVELY RADIANT CC BROAD SPECTRUM SPF30 - FAIR TO LIGHT [Suspect]
     Active Substance: HOMOSALATE\OCTINOXATE\OCTISALATE\OXYBENZONE
     Indication: DRY SKIN
     Dosage: APPLIED TO A SURFACE, USUALLY THE SKIN
     Route: 061
     Dates: start: 20160328
  3. AVEENO POSITIVELY RADIANT CC BROAD SPECTRUM SPF30 - FAIR TO LIGHT [Suspect]
     Active Substance: HOMOSALATE\OCTINOXATE\OCTISALATE\OXYBENZONE
     Indication: SKIN DISORDER
     Dosage: APPLIED TO A SURFACE, USUALLY THE SKIN
     Route: 061
     Dates: start: 20160328
  4. SEASONALE BIRTH CONTROL [Concomitant]

REACTIONS (5)
  - Hypersensitivity [None]
  - Urticaria [None]
  - Skin tightness [None]
  - Pain of skin [None]
  - Eye swelling [None]

NARRATIVE: CASE EVENT DATE: 20160330
